FAERS Safety Report 10680830 (Version 2)
Quarter: 2015Q1

REPORT INFORMATION
  Report Type: Report from Study
  Country: BR (occurrence: BR)
  Receive Date: 20141229
  Receipt Date: 20150108
  Transmission Date: 20150720
  Serious: Yes (Other)
  Sender: FDA-Public Use
  Company Number: BR-SA-2014SA176077

PATIENT
  Sex: Female
  Weight: 51 kg

DRUGS (8)
  1. AZOPT [Concomitant]
     Active Substance: BRINZOLAMIDE
     Indication: GLAUCOMA
  2. HYDROCHLOROTHIAZIDE/LOSARTAN [Concomitant]
     Indication: BLOOD PRESSURE
  3. GLIFAGE [Concomitant]
     Active Substance: METFORMIN HYDROCHLORIDE
     Indication: BLOOD GLUCOSE DECREASED
  4. SELOZOK [Concomitant]
     Active Substance: METOPROLOL SUCCINATE
     Indication: BLOOD PRESSURE
  5. DONAREN [Concomitant]
     Active Substance: TRAZODONE HYDROCHLORIDE
     Indication: ANXIETY
  6. SOMALGIN CARDIO [Concomitant]
     Active Substance: ASPIRIN\DIHYDROXYALUMINUM AMINOACETATE ANHYDROUS\MAGNESIUM CARBONATE
     Indication: PROPHYLAXIS
  7. CLIKSTAR [Concomitant]
     Active Substance: CLIKSTAR
     Dates: start: 2010
  8. LANTUS [Suspect]
     Active Substance: INSULIN GLARGINE
     Indication: DIABETES MELLITUS
     Route: 058
     Dates: start: 2010

REACTIONS (1)
  - Dementia Alzheimer^s type [Recovering/Resolving]

NARRATIVE: CASE EVENT DATE: 2011
